FAERS Safety Report 8547760-6 (Version None)
Quarter: 2012Q3

REPORT INFORMATION
  Report Type: 
  Country: None (occurrence: None)
  Receive Date: 20120727
  Receipt Date: 20111219
  Transmission Date: 20120928
  Serious: Yes (Hospitalization)
  Sender: FDA-Public Use
  Company Number: US-ASTRAZENECA-2011SE76803

PATIENT
  Sex: Male

DRUGS (5)
  1. PROZAC [Concomitant]
  2. CLONAZEPAM [Concomitant]
  3. ANTI SEIZURES MEDICATIONS [Concomitant]
  4. ATIVAN [Concomitant]
     Dates: end: 20111101
  5. SEROQUEL [Suspect]
     Indication: NERVOUSNESS
     Dosage: 50 MG ONCE IN THE MORNING AND 200 MG ONCE AT NIGHT
     Route: 048
     Dates: start: 20060101

REACTIONS (1)
  - CONVULSION [None]
